FAERS Safety Report 9446004 (Version 1)
Quarter: 2013Q3

REPORT INFORMATION
  Report Type: Spontaneous
  Country: GB (occurrence: GB)
  Receive Date: 20130807
  Receipt Date: 20130807
  Transmission Date: 20140515
  Serious: Yes (Other)
  Sender: FDA-Public Use
  Company Number: ALCN2013GB003992

PATIENT
  Age: 68 Year
  Sex: Female

DRUGS (2)
  1. TIMOLOL [Suspect]
     Route: 047
  2. CHLORAMPHENICOL [Suspect]
     Route: 047

REACTIONS (2)
  - Corneal degeneration [Recovering/Resolving]
  - Intraocular pressure increased [Recovering/Resolving]
